FAERS Safety Report 24140077 (Version 1)
Quarter: 2024Q3

REPORT INFORMATION
  Report Type: Spontaneous
  Country: US (occurrence: US)
  Receive Date: 20240726
  Receipt Date: 20240726
  Transmission Date: 20241017
  Serious: Yes (Other)
  Sender: BAUSCH AND LOMB
  Company Number: US-BAUSCHBL-2024BNL030250

PATIENT
  Age: 78 Year
  Sex: Female

DRUGS (1)
  1. MINERALS\VITAMINS [Suspect]
     Active Substance: MINERALS\VITAMINS
     Indication: Product used for unknown indication
     Route: 048

REACTIONS (1)
  - Dry age-related macular degeneration [Unknown]

NARRATIVE: CASE EVENT DATE: 20230101
